FAERS Safety Report 7218548-3 (Version None)
Quarter: 2011Q1

REPORT INFORMATION
  Report Type: 
  Country: None (occurrence: None)
  Receive Date: 20110110
  Receipt Date: 20110105
  Transmission Date: 20110831
  Serious: Yes (Death)
  Sender: FDA-Public Use
  Company Number: ES-JNJFOC-20110102096

PATIENT
  Age: 63 Year
  Sex: Male
  Weight: 89 kg

DRUGS (3)
  1. REOPRO [Suspect]
     Indication: ACUTE MYOCARDIAL INFARCTION
     Route: 042
  2. CLOPIDOGREL [Concomitant]
     Route: 048
  3. HEPARIN [Concomitant]
     Route: 042

REACTIONS (4)
  - SHOCK HAEMORRHAGIC [None]
  - PULMONARY HAEMORRHAGE [None]
  - RESPIRATORY FAILURE [None]
  - ACUTE MYOCARDIAL INFARCTION [None]
